FAERS Safety Report 20613173 (Version 1)
Quarter: 2022Q1

REPORT INFORMATION
  Report Type: Spontaneous
  Country: US (occurrence: US)
  Receive Date: 20220318
  Receipt Date: 20220318
  Transmission Date: 20220424
  Serious: No
  Sender: FDA-Public Use
  Company Number: US-SANOFI-01015226

PATIENT
  Age: 80 Year
  Sex: Female

DRUGS (1)
  1. FLOMAX [Suspect]
     Active Substance: TAMSULOSIN HYDROCHLORIDE
     Indication: Nephrolithiasis
     Route: 048

REACTIONS (5)
  - Dizziness [Unknown]
  - Feeling abnormal [Unknown]
  - Unevaluable event [Unknown]
  - Product use complaint [Unknown]
  - Product label issue [Unknown]
